FAERS Safety Report 8823468 (Version 1)
Quarter: 2012Q4

REPORT INFORMATION
  Report Type: 
  Country: JP (occurrence: JP)
  Receive Date: 20121003
  Receipt Date: 20121003
  Transmission Date: 20130627
  Serious: Yes (Hospitalization)
  Sender: FDA-Public Use
  Company Number: JP-009507513-1209JPN010762

PATIENT
  Sex: Male

DRUGS (6)
  1. REFLEX [Suspect]
     Indication: DEPRESSION
     Dosage: 15 mg, qd
     Route: 048
  2. REFLEX [Suspect]
     Dosage: po30 mg, qd
     Route: 048
  3. LORAZEPAM [Concomitant]
     Route: 048
  4. SULPIRIDE [Concomitant]
  5. QUETIAPINE FUMARATE [Concomitant]
     Route: 048
  6. ESCITALOPRAM OXALATE [Concomitant]
     Dosage: 3-4 days
     Route: 048

REACTIONS (2)
  - Stupor [Unknown]
  - Loss of consciousness [Unknown]
